FAERS Safety Report 7390971-6 (Version None)
Quarter: 2011Q2

REPORT INFORMATION
  Report Type: 
  Country: None (occurrence: None)
  Receive Date: 20110404
  Receipt Date: 20110330
  Transmission Date: 20111010
  Serious: No
  Sender: FDA-Public Use
  Company Number: US-PFIZER INC-2011072282

PATIENT
  Sex: Female
  Weight: 112 kg

DRUGS (6)
  1. POTASSIUM [Concomitant]
     Dosage: 20 MEQ, UNK
     Route: 048
  2. LYRICA [Suspect]
     Indication: DIABETIC NEUROPATHY
     Dosage: 100 MG, 3X/DAY
     Route: 048
     Dates: start: 20100101
  3. LASIX [Concomitant]
     Dosage: 20 MG, UNK
     Route: 048
  4. OXYCODONE [Concomitant]
     Dosage: UNK
     Route: 048
  5. METFORMIN [Concomitant]
     Indication: DIABETES MELLITUS
     Dosage: 1000 MG, 1X/DAY
     Route: 048
  6. GLYBURIDE [Concomitant]
     Indication: DIABETES MELLITUS
     Dosage: 5 MG, 1X/DAY
     Route: 048

REACTIONS (3)
  - MUSCLE TWITCHING [None]
  - WEIGHT DECREASED [None]
  - DYSKINESIA [None]
